FAERS Safety Report 4911864-7 (Version None)
Quarter: 2006Q1

REPORT INFORMATION
  Report Type: 
  Country: None (occurrence: None)
  Receive Date: 20060215
  Receipt Date: 20060210
  Transmission Date: 20060701
  Serious: Yes (Hospitalization)
  Sender: FDA-Public Use
  Company Number: FR-RB-2770-2006

PATIENT
  Age: 15 Month
  Sex: Female
  Weight: 9.8 kg

DRUGS (2)
  1. BUPRENORPHINE HCL [Suspect]
     Dosage: DOSAGE UNKNOWN
     Route: 048
     Dates: start: 20060120, end: 20060120
  2. OXYBUTYNIN HYDROCHLORIDE [Suspect]
     Dosage: DOSAGE UNKNOWN
     Route: 048
     Dates: start: 20060120, end: 20060120

REACTIONS (7)
  - ACCIDENTAL EXPOSURE [None]
  - LARYNGEAL DYSPNOEA [None]
  - MIOSIS [None]
  - PYREXIA [None]
  - SOMNOLENCE [None]
  - TACHYCARDIA [None]
  - URINARY RETENTION [None]
